FAERS Safety Report 20930070 (Version 1)
Quarter: 2022Q2

REPORT INFORMATION
  Report Type: Report from Study
  Country: US (occurrence: US)
  Receive Date: 20220608
  Receipt Date: 20220608
  Transmission Date: 20220721
  Serious: Yes (Life-Threatening, Hospitalization, Other)
  Sender: FDA-Public Use
  Company Number: US-BRISTOL-MYERS SQUIBB COMPANY-2022-050614

PATIENT
  Age: 72 Year
  Sex: Female
  Weight: 47.3 kg

DRUGS (3)
  1. NIVOLUMAB [Suspect]
     Active Substance: NIVOLUMAB
     Indication: Small cell lung cancer
     Route: 065
  2. IPILIMUMAB [Suspect]
     Active Substance: IPILIMUMAB
     Indication: Small cell lung cancer
     Route: 065
  3. LURBINECTEDIN [Suspect]
     Active Substance: LURBINECTEDIN
     Indication: Small cell lung cancer
     Route: 065

REACTIONS (8)
  - Dehydration [Unknown]
  - Hypotension [Unknown]
  - Confusional state [Unknown]
  - Swelling face [Unknown]
  - Hypoglycaemia [Unknown]
  - Diarrhoea [Unknown]
  - Lip swelling [Unknown]
  - Adrenal insufficiency [Unknown]

NARRATIVE: CASE EVENT DATE: 20220417
